FAERS Safety Report 7671406-2 (Version None)
Quarter: 2011Q3

REPORT INFORMATION
  Report Type: 
  Country: None (occurrence: None)
  Receive Date: 20110803
  Receipt Date: 20110720
  Transmission Date: 20111222
  Serious: Yes (Life-Threatening, Hospitalization)
  Sender: FDA-Public Use
  Company Number: UTC-005923

PATIENT
  Age: 16 Year
  Sex: Male
  Weight: 64 kg

DRUGS (4)
  1. TRACLEER [Concomitant]
  2. REVATIO [Concomitant]
  3. VENTAVIS [Concomitant]
  4. REMODULIN [Suspect]
     Indication: PULMONARY ARTERIAL HYPERTENSION
     Dosage: 14.4 UG/KG (0.01 UG/KG, 1 IN 1 MIN) INTRAVENOUS
     Route: 042
     Dates: start: 20110316, end: 20110323

REACTIONS (13)
  - VENTRICULAR FIBRILLATION [None]
  - HEPATIC FAILURE [None]
  - CARDIAC ARREST [None]
  - COAGULOPATHY [None]
  - INFUSION SITE PAIN [None]
  - VOMITING [None]
  - CEREBRAL ISCHAEMIA [None]
  - HYPOTENSION [None]
  - RENAL FAILURE [None]
  - TACHYCARDIA [None]
  - DIZZINESS [None]
  - NAUSEA [None]
  - THROMBOCYTOPENIA [None]
